FAERS Safety Report 19879603 (Version 4)
Quarter: 2021Q4

REPORT INFORMATION
  Report Type: Report from Study
  Country: US (occurrence: US)
  Receive Date: 20210924
  Receipt Date: 20211011
  Transmission Date: 20220303
  Serious: Yes (Other)
  Sender: FDA-Public Use
  Company Number: US-JNJFOC-20210854645

PATIENT
  Age: 59 Year
  Sex: Female
  Weight: 81.27 kg

DRUGS (6)
  1. SIMPONI [Suspect]
     Active Substance: GOLIMUMAB
     Indication: Ankylosing spondylitis
     Dosage: MOST RECENT DOSE ABOUT 2 WEEKS AGO
     Route: 058
     Dates: start: 20210302
  2. SIMPONI [Suspect]
     Active Substance: GOLIMUMAB
     Route: 058
     Dates: start: 202101
  3. CELEBREX [Concomitant]
     Active Substance: CELECOXIB
  4. CYMBALTA [Concomitant]
     Active Substance: DULOXETINE HYDROCHLORIDE
     Indication: Fibromyalgia
  5. ACIPHEX [Concomitant]
     Active Substance: RABEPRAZOLE SODIUM
     Indication: Gastrooesophageal reflux disease
  6. CLARITIN [Concomitant]
     Active Substance: LORATADINE
     Indication: Multiple allergies

REACTIONS (8)
  - Hypersensitivity [Unknown]
  - Haemorrhage [Unknown]
  - Pharyngeal cyst [Unknown]
  - Ankylosing spondylitis [Recovering/Resolving]
  - Cough [Unknown]
  - Device malfunction [Unknown]
  - Product dose omission issue [Unknown]
  - Therapeutic product effect decreased [Unknown]

NARRATIVE: CASE EVENT DATE: 20210101
